FAERS Safety Report 10340551 (Version 1)
Quarter: 2014Q3

REPORT INFORMATION
  Report Type: Spontaneous
  Country: US (occurrence: US)
  Receive Date: 20140724
  Receipt Date: 20140724
  Transmission Date: 20150326
  Serious: Yes (Other)
  Sender: FDA-Public Use
  Company Number: US-BAYER-2014-107986

PATIENT
  Age: 82 Year
  Sex: Female
  Weight: 60 kg

DRUGS (5)
  1. BAYER GENUINE ASPIRIN [Suspect]
     Active Substance: ASPIRIN
     Indication: HEADACHE
     Dosage: 1 DF, PRN
     Route: 048
     Dates: end: 2013
  2. BAYER GENUINE ASPIRIN [Suspect]
     Active Substance: ASPIRIN
     Indication: ANALGESIC THERAPY
  3. VITAMIN B12 NOS [Concomitant]
  4. BAYER LOW DOSE [Suspect]
     Active Substance: ASPIRIN
     Dosage: 1 DF, PRN
     Route: 048
     Dates: end: 2013
  5. VITAMIN D3 [Concomitant]
     Active Substance: CHOLECALCIFEROL

REACTIONS (1)
  - Blood urine present [Recovered/Resolved]
